FAERS Safety Report 18886153 (Version 29)
Quarter: 2025Q2

REPORT INFORMATION
  Report Type: Report from Study
  Country: US (occurrence: US)
  Receive Date: 20210212
  Receipt Date: 20250617
  Transmission Date: 20250716
  Serious: Yes (Hospitalization, Other)
  Sender: TAKEDA
  Company Number: US-KAMADA LIMITED-2021US001022

PATIENT
  Age: 63 Year
  Sex: Female
  Weight: 105 kg

DRUGS (92)
  1. GLASSIA [Suspect]
     Active Substance: .ALPHA.1-PROTEINASE INHIBITOR HUMAN
     Indication: Alpha-1 antitrypsin deficiency
     Dosage: UNK UNK, 1/WEEK
     Dates: start: 20120710
  2. GLASSIA [Suspect]
     Active Substance: .ALPHA.1-PROTEINASE INHIBITOR HUMAN
     Dosage: UNK UNK, 1/WEEK
     Dates: start: 20120712
  3. GLASSIA [Suspect]
     Active Substance: .ALPHA.1-PROTEINASE INHIBITOR HUMAN
     Dosage: UNK UNK, 1/WEEK
     Dates: start: 20220505
  4. GLASSIA [Suspect]
     Active Substance: .ALPHA.1-PROTEINASE INHIBITOR HUMAN
     Dosage: UNK UNK, 1/WEEK
  5. GLASSIA [Suspect]
     Active Substance: .ALPHA.1-PROTEINASE INHIBITOR HUMAN
     Dosage: 60 MILLIGRAM/KILOGRAM, 1/WEEK
  6. CIPRO [Concomitant]
     Active Substance: CIPROFLOXACIN HYDROCHLORIDE
  7. TRADJENTA [Concomitant]
     Active Substance: LINAGLIPTIN
  8. DICYCLOMINE [Concomitant]
     Active Substance: DICYCLOMINE HYDROCHLORIDE
  9. BUTALBITAL, ACETAMINOPHEN, AND CAFFEINE [Concomitant]
     Active Substance: ACETAMINOPHEN\BUTALBITAL\CAFFEINE
  10. FUROSEMIDE [Concomitant]
     Active Substance: FUROSEMIDE
  11. DIPHENHYDRAMINE HYDROCHLORIDE [Concomitant]
     Active Substance: DIPHENHYDRAMINE HYDROCHLORIDE
  12. HEPARIN [Concomitant]
     Active Substance: HEPARIN SODIUM
  13. LIDOCAINE [Concomitant]
     Active Substance: LIDOCAINE
  14. SODIUM CHLORIDE [Concomitant]
     Active Substance: SODIUM CHLORIDE
  15. GLIPIZIDE [Concomitant]
     Active Substance: GLIPIZIDE
  16. EPINEPHRINE [Concomitant]
     Active Substance: EPINEPHRINE
  17. OMEPRAZOLE [Concomitant]
     Active Substance: OMEPRAZOLE
  18. PANTOPRAZOLE SODIUM [Concomitant]
     Active Substance: PANTOPRAZOLE SODIUM
  19. PREMARIN [Concomitant]
     Active Substance: ESTROGENS, CONJUGATED
  20. DULOXETINE HYDROCHLORIDE [Concomitant]
     Active Substance: DULOXETINE HYDROCHLORIDE
  21. HYDROXYZINE [Concomitant]
     Active Substance: HYDROXYZINE HYDROCHLORIDE
  22. DESVENLAFAXINE [Concomitant]
     Active Substance: DESVENLAFAXINE
  23. PIOGLITAZONE [Concomitant]
     Active Substance: PIOGLITAZONE
  24. QUETIAPINE [Concomitant]
     Active Substance: QUETIAPINE
  25. FAMOTIDINE [Concomitant]
     Active Substance: FAMOTIDINE
  26. DIAZEPAM [Concomitant]
     Active Substance: DIAZEPAM
  27. LINZESS [Concomitant]
     Active Substance: LINACLOTIDE
  28. BREO ELLIPTA [Concomitant]
     Active Substance: FLUTICASONE FUROATE\VILANTEROL TRIFENATATE
  29. METFORMIN HYDROCHLORIDE [Concomitant]
     Active Substance: METFORMIN HYDROCHLORIDE
  30. PSEUDOEPHEDRINE [Concomitant]
     Active Substance: PSEUDOEPHEDRINE
  31. ELIQUIS [Concomitant]
     Active Substance: APIXABAN
  32. CYCLOBENZAPRINE HYDROCHLORIDE [Concomitant]
     Active Substance: CYCLOBENZAPRINE HYDROCHLORIDE
  33. METOPROLOL TARTRATE [Concomitant]
     Active Substance: METOPROLOL TARTRATE
  34. STIOLTO RESPIMAT [Concomitant]
     Active Substance: OLODATEROL HYDROCHLORIDE\TIOTROPIUM BROMIDE MONOHYDRATE
  35. OXYGEN [Concomitant]
     Active Substance: OXYGEN
  36. LIOTHYRONINE SODIUM [Concomitant]
     Active Substance: LIOTHYRONINE SODIUM
  37. ASPIRIN [Concomitant]
     Active Substance: ASPIRIN
  38. LEVOTHYROXINE SODIUM [Concomitant]
     Active Substance: LEVOTHYROXINE SODIUM
  39. BUSPIRONE HCL [Concomitant]
     Active Substance: BUSPIRONE HYDROCHLORIDE
  40. PROPRANOLOL [Concomitant]
     Active Substance: PROPRANOLOL HYDROCHLORIDE
  41. TRESIBA [Concomitant]
     Active Substance: INSULIN DEGLUDEC
  42. CIPROFLOXACIN HYDROCHLORIDE [Concomitant]
     Active Substance: CIPROFLOXACIN HYDROCHLORIDE
  43. METRONIDAZOLE [Concomitant]
     Active Substance: METRONIDAZOLE
  44. PREDNISONE [Concomitant]
     Active Substance: PREDNISONE
  45. NITROGLYCERIN [Concomitant]
     Active Substance: NITROGLYCERIN
  46. NOVOLOG [Concomitant]
     Active Substance: INSULIN ASPART
  47. ACETAMINOPHEN [Concomitant]
     Active Substance: ACETAMINOPHEN
  48. BROMPHENIRAMINE\PSEUDOEPHEDRINE [Concomitant]
     Active Substance: BROMPHENIRAMINE\PSEUDOEPHEDRINE
  49. BACLOFEN [Concomitant]
     Active Substance: BACLOFEN
  50. FISH OIL [Concomitant]
     Active Substance: FISH OIL
     Indication: Product used for unknown indication
  51. VITAMIN D [Concomitant]
     Active Substance: VITAMIN D NOS
     Indication: Product used for unknown indication
  52. METOPROLOL [Concomitant]
     Active Substance: METOPROLOL
     Indication: Product used for unknown indication
  53. METFORMIN [Concomitant]
     Active Substance: METFORMIN HYDROCHLORIDE
     Indication: Product used for unknown indication
  54. BUSPIRONE [Concomitant]
     Active Substance: BUSPIRONE HYDROCHLORIDE
     Indication: Product used for unknown indication
  55. DULOXETINE [Concomitant]
     Active Substance: DULOXETINE
     Indication: Product used for unknown indication
  56. LEVOTHYROXINE [Concomitant]
     Active Substance: LEVOTHYROXINE
     Indication: Product used for unknown indication
  57. LIOTHYRONINE [Concomitant]
     Active Substance: LIOTHYRONINE
     Indication: Product used for unknown indication
  58. AMOXICILLIN [Concomitant]
     Active Substance: AMOXICILLIN
  59. DESVENLAFAXINE SUCCINATE [Concomitant]
     Active Substance: DESVENLAFAXINE SUCCINATE
  60. QUETIAPINE FUMARATE [Concomitant]
     Active Substance: QUETIAPINE FUMARATE
  61. ESCITALOPRAM OXALATE [Concomitant]
     Active Substance: ESCITALOPRAM OXALATE
  62. NYSTATIN [Concomitant]
     Active Substance: NYSTATIN
  63. PANTOPRAZOLE [Concomitant]
     Active Substance: PANTOPRAZOLE
  64. BROMPHENIRAMINE\DEXTROMETHORPHAN\PSEUDOEPHEDRINE [Concomitant]
     Active Substance: BROMPHENIRAMINE\DEXTROMETHORPHAN\PSEUDOEPHEDRINE
  65. GABAPENTIN [Concomitant]
     Active Substance: GABAPENTIN
  66. TIZANIDINE [Concomitant]
     Active Substance: TIZANIDINE
  67. ACYCLOVIR [Concomitant]
     Active Substance: ACYCLOVIR
  68. FERROUS GLUCONATE [Concomitant]
     Active Substance: FERROUS GLUCONATE
  69. YUVAFEM [Concomitant]
     Active Substance: ESTRADIOL HEMIHYDRATE
  70. ESOMEPRAZOLE MAGNESIUM [Concomitant]
     Active Substance: ESOMEPRAZOLE MAGNESIUM
  71. ARIPIPRAZOLE [Concomitant]
     Active Substance: ARIPIPRAZOLE
  72. EZETIMIBE [Concomitant]
     Active Substance: EZETIMIBE
  73. LANSOPRAZOLE [Concomitant]
     Active Substance: LANSOPRAZOLE
  74. ZITHROMAX [Concomitant]
     Active Substance: AZITHROMYCIN DIHYDRATE
  75. FERROUS SULFATE [Concomitant]
     Active Substance: FERROUS SULFATE
  76. OZEMPIC [Concomitant]
     Active Substance: SEMAGLUTIDE
  77. VRAYLAR [Concomitant]
     Active Substance: CARIPRAZINE
  78. SPIRIVA RESPIMAT [Concomitant]
     Active Substance: TIOTROPIUM BROMIDE
  79. ACETAMINOPHEN\HYDROCODONE [Concomitant]
     Active Substance: ACETAMINOPHEN\HYDROCODONE
  80. VITAMINS [Concomitant]
     Active Substance: VITAMINS
  81. METHOCARBAMOL [Concomitant]
     Active Substance: METHOCARBAMOL
  82. ROFLUMILAST [Concomitant]
     Active Substance: ROFLUMILAST
  83. ZEPBOUND [Concomitant]
     Active Substance: TIRZEPATIDE
  84. TRAMADOL HCL [Concomitant]
     Active Substance: TRAMADOL HYDROCHLORIDE
  85. DULCOLAX STOOL SOFTENER [Concomitant]
     Active Substance: DOCUSATE SODIUM
  86. ASPIRIN [Concomitant]
     Active Substance: ASPIRIN
  87. PREGABALIN [Concomitant]
     Active Substance: PREGABALIN
  88. LISDEXAMFETAMINE DIMESYLATE [Concomitant]
     Active Substance: LISDEXAMFETAMINE DIMESYLATE
  89. METOPROLOL SUCCINATE [Concomitant]
     Active Substance: METOPROLOL SUCCINATE
  90. TRAZODONE HCL [Concomitant]
     Active Substance: TRAZODONE HYDROCHLORIDE
  91. MOUNJARO [Concomitant]
     Active Substance: TIRZEPATIDE
  92. MAGNESIUM GLYCINATE [Concomitant]
     Active Substance: MAGNESIUM GLYCINATE

REACTIONS (29)
  - Diverticulitis [Unknown]
  - Pulmonary embolism [Unknown]
  - Pulmonary mass [Unknown]
  - Haemoglobin decreased [Unknown]
  - Abdominal pain upper [Unknown]
  - Intestinal obstruction [Unknown]
  - Sepsis [Unknown]
  - COVID-19 [Unknown]
  - Blood culture positive [Recovered/Resolved]
  - Urinary tract infection [Unknown]
  - Pneumonia [Unknown]
  - Cardiac failure [Unknown]
  - Lung adenocarcinoma [Unknown]
  - Nasopharyngitis [Unknown]
  - Influenza [Unknown]
  - Chest pain [Unknown]
  - Chronic obstructive pulmonary disease [Unknown]
  - Myalgia [Unknown]
  - Sinusitis [Unknown]
  - Dyspnoea [Unknown]
  - Insurance issue [Recovered/Resolved]
  - Seasonal allergy [Unknown]
  - Device issue [Recovered/Resolved]
  - Product dose omission issue [Recovered/Resolved]
  - Gastroenteritis viral [Unknown]
  - Pain [Unknown]
  - Mental disorder [Unknown]
  - Headache [Unknown]
  - Nausea [Unknown]

NARRATIVE: CASE EVENT DATE: 20230907
